FAERS Safety Report 24433735 (Version 1)
Quarter: 2024Q4

REPORT INFORMATION
  Report Type: Spontaneous
  Country: BE (occurrence: BE)
  Receive Date: 20241014
  Receipt Date: 20241014
  Transmission Date: 20250115
  Serious: Yes (Other)
  Sender: SANDOZ
  Company Number: None

PATIENT
  Age: 6 Month
  Sex: Female

DRUGS (12)
  1. ADALIMUMAB [Suspect]
     Active Substance: ADALIMUMAB
     Indication: Inflammatory bowel disease
     Dosage: 40 MG, Q2W
     Route: 058
  2. ADALIMUMAB [Suspect]
     Active Substance: ADALIMUMAB
     Indication: Mevalonate kinase deficiency
     Dosage: 40 MG, Q3W
     Route: 058
  3. ANAKINRA [Suspect]
     Active Substance: ANAKINRA
     Indication: Mevalonate kinase deficiency
     Dosage: 5.000MG/KG QD
     Route: 065
  4. ANAKINRA [Suspect]
     Active Substance: ANAKINRA
     Indication: Inflammatory bowel disease
     Dosage: 8.000MG/KG QD
     Route: 065
  5. METHOTREXATE [Suspect]
     Active Substance: METHOTREXATE
     Indication: Enterocolitis haemorrhagic
     Dosage: 15MG/M?/W
     Route: 065
  6. METHOTREXATE [Suspect]
     Active Substance: METHOTREXATE
     Indication: Inflammatory bowel disease
  7. METHYLPREDNISOLONE [Suspect]
     Active Substance: METHYLPREDNISOLONE
     Indication: Enterocolitis haemorrhagic
     Dosage: UP TO 2MG/KG/D
     Route: 065
  8. METHYLPREDNISOLONE [Suspect]
     Active Substance: METHYLPREDNISOLONE
     Indication: Inflammatory bowel disease
  9. CANAKINUMAB [Concomitant]
     Active Substance: CANAKINUMAB
     Indication: Mevalonate kinase deficiency
     Dosage: 8 MILLIGRAM/KILOGRAM, QMO
     Route: 065
  10. CANAKINUMAB [Concomitant]
     Active Substance: CANAKINUMAB
     Indication: Interleukin therapy
  11. METHOTREXATE [Concomitant]
     Active Substance: METHOTREXATE
     Indication: Mevalonate kinase deficiency
     Dosage: 15 MICROGRAM/SQ. METER, QWK
     Route: 065
  12. METHYLPREDNISOLONE [Concomitant]
     Active Substance: METHYLPREDNISOLONE
     Indication: Mevalonate kinase deficiency
     Dosage: UP TO 2MG/KG/D
     Route: 065

REACTIONS (5)
  - Systemic candida [Recovered/Resolved]
  - Pneumonia [Recovered/Resolved]
  - Device related infection [Recovered/Resolved]
  - Off label use [Unknown]
  - Off label use [Recovered/Resolved]
